FAERS Safety Report 8268795-7 (Version None)
Quarter: 2012Q2

REPORT INFORMATION
  Report Type: 
  Country: None (occurrence: None)
  Receive Date: 20120409
  Receipt Date: 20120409
  Transmission Date: 20120825
  Serious: Yes (Hospitalization)
  Sender: FDA-Public Use
  Company Number: None

PATIENT
  Age: 22 Year
  Sex: Female
  Weight: 99.79 kg

DRUGS (1)
  1. LARIAM [Suspect]
     Indication: MALARIA PROPHYLAXIS
     Dosage: 250 MG
     Route: 048
     Dates: start: 19930101, end: 19930531

REACTIONS (15)
  - HALLUCINATION [None]
  - GUN SHOT WOUND [None]
  - PARANOIA [None]
  - POST-TRAUMATIC STRESS DISORDER [None]
  - INTENTIONAL SELF-INJURY [None]
  - MAJOR DEPRESSION [None]
  - SUICIDAL IDEATION [None]
  - HOMICIDAL IDEATION [None]
  - FLASHBACK [None]
  - ANGER [None]
  - PERSONALITY DISORDER [None]
  - PSYCHOTIC DISORDER [None]
  - NIGHTMARE [None]
  - IRRITABILITY [None]
  - BIPOLAR DISORDER [None]
